FAERS Safety Report 9788108 (Version 1)
Quarter: 2013Q4

REPORT INFORMATION
  Report Type: Spontaneous
  Country: US (occurrence: None)
  Receive Date: 20131227
  Receipt Date: 20131227
  Transmission Date: 20140711
  Serious: Yes (Hospitalization)
  Sender: FDA-Public Use
  Company Number: None

PATIENT
  Age: 84 Year
  Sex: Male
  Weight: 137 kg

DRUGS (20)
  1. COUMADIN [Suspect]
     Indication: PULMONARY EMBOLISM
     Route: 048
  2. LEUPROLIDE [Concomitant]
  3. CHOLECALCIFEROL [Concomitant]
  4. MVI [Concomitant]
  5. OMEGA 3 [Concomitant]
  6. CYANOCOBALAMIN [Concomitant]
  7. DOCUSATE [Concomitant]
  8. TERAZOSIN [Concomitant]
  9. AMBIEN [Concomitant]
  10. HCTZ/LISINOPRIL [Concomitant]
  11. LASIX [Concomitant]
  12. RAMIPRIL [Concomitant]
  13. ZYTIGA [Concomitant]
  14. ZOLEDRONIC ACID [Concomitant]
  15. PRAVASTATIN [Concomitant]
  16. KCL [Concomitant]
  17. FLUTICASONE [Concomitant]
  18. SALMETEROL [Concomitant]
  19. AMIODARONE [Concomitant]
  20. CARVEDILOL [Concomitant]

REACTIONS (4)
  - Fall [None]
  - Fibula fracture [None]
  - Gastrointestinal haemorrhage [None]
  - International normalised ratio increased [None]
